FAERS Safety Report 22004946 (Version 1)
Quarter: 2023Q1

REPORT INFORMATION
  Report Type: Spontaneous
  Country: US (occurrence: US)
  Receive Date: 20230217
  Receipt Date: 20230217
  Transmission Date: 20230417
  Serious: Yes (Hospitalization)
  Sender: FDA-Public Use
  Company Number: US-SA-SAC20230216001140

PATIENT
  Age: 62 Year
  Sex: Female
  Weight: 56.24 kg

DRUGS (2)
  1. DUPIXENT [Suspect]
     Active Substance: DUPILUMAB
     Indication: Chronic sinusitis
     Dosage: 300MG QOW
     Route: 058
     Dates: start: 202208
  2. DUPIXENT [Suspect]
     Active Substance: DUPILUMAB
     Indication: Nasal polyps

REACTIONS (1)
  - Surgery [Recovered/Resolved]

NARRATIVE: CASE EVENT DATE: 20230116
